FAERS Safety Report 13389037 (Version 1)
Quarter: 2017Q1

REPORT INFORMATION
  Report Type: Spontaneous
  Country: IT (occurrence: IT)
  Receive Date: 20170330
  Receipt Date: 20170330
  Transmission Date: 20170429
  Serious: Yes (Other)
  Sender: FDA-Public Use
  Company Number: IT-PFIZER INC-2017098738

PATIENT
  Age: 41 Year
  Sex: Male

DRUGS (9)
  1. NORVASC [Suspect]
     Active Substance: AMLODIPINE BESYLATE
     Indication: HYPERTENSION
     Dosage: 10 MG, 1X/DAY
     Route: 048
     Dates: end: 20161103
  2. LASIX [Suspect]
     Active Substance: FUROSEMIDE
     Indication: HYPERTENSION
     Dosage: 25 MG, DAILY
     Route: 048
     Dates: end: 20161103
  3. LASIX [Suspect]
     Active Substance: FUROSEMIDE
     Dosage: 25 MG (25 MG 1 TABLET), SINGLE
     Route: 048
     Dates: start: 20161102, end: 20161102
  4. OLPRESS [Suspect]
     Active Substance: OLMESARTAN MEDOXOMIL
     Dosage: 20 MG, 1X/DAY
     Route: 048
     Dates: end: 20161103
  5. IBIFEN [Suspect]
     Active Substance: KETOPROFEN
     Dosage: UNK
     Route: 042
     Dates: start: 20161103, end: 20161103
  6. PARACETAMOL [Suspect]
     Active Substance: ACETAMINOPHEN
     Indication: HEADACHE
     Dosage: 2 G (1 G 2 TABLETS), TOTAL
     Route: 048
     Dates: start: 20161102, end: 20161102
  7. NEXIUM [Suspect]
     Active Substance: ESOMEPRAZOLE MAGNESIUM
     Dosage: UNK
     Route: 048
     Dates: start: 20161103, end: 20161103
  8. OLPRESS [Suspect]
     Active Substance: OLMESARTAN MEDOXOMIL
     Dosage: 60 MG (20 MG 3 TABLETS), SINGLE
     Route: 048
     Dates: start: 20161102, end: 20161102
  9. NORVASC [Suspect]
     Active Substance: AMLODIPINE BESYLATE
     Dosage: 20 MG (10 MG 2 TABLETS), SINGLE
     Route: 048
     Dates: start: 20161102, end: 20161102

REACTIONS (6)
  - Hypersensitivity [Unknown]
  - Drug ineffective [Unknown]
  - Extra dose administered [Unknown]
  - Headache [Unknown]
  - Hypertension [Unknown]
  - Alanine aminotransferase increased [Unknown]

NARRATIVE: CASE EVENT DATE: 20161102
